APPROVED DRUG PRODUCT: TIMOLOL MALEATE
Active Ingredient: TIMOLOL MALEATE
Strength: EQ 0.5% BASE
Dosage Form/Route: SOLUTION/DROPS;OPHTHALMIC
Application: A212291 | Product #001 | TE Code: AT3
Applicant: EPIC PHARMA LLC
Approved: Sep 11, 2020 | RLD: No | RS: No | Type: RX